FAERS Safety Report 17873598 (Version 3)
Quarter: 2020Q3

REPORT INFORMATION
  Report Type: Spontaneous
  Country: PL (occurrence: PL)
  Receive Date: 20200609
  Receipt Date: 20200706
  Transmission Date: 20201103
  Serious: Yes (Death, Other)
  Sender: FDA-Public Use
  Company Number: PL-AUROBINDO-AUR-APL-2020-027418

PATIENT
  Age: 68 Year
  Sex: Male

DRUGS (13)
  1. DABIGATRAN [Suspect]
     Active Substance: DABIGATRAN
     Dosage: 110 MILLIGRAM, TWO TIMES A DAY
     Route: 065
     Dates: start: 201601
  2. PRAXBIND [Suspect]
     Active Substance: IDARUCIZUMAB
     Dosage: 3 GRAM, TWO TIMES A DAY
     Route: 065
  3. DABIGATRAN [Suspect]
     Active Substance: DABIGATRAN
     Dosage: 150 MILLIGRAM, ONCE A DAY
     Route: 065
     Dates: start: 201603
  4. FORMOTEROL [Suspect]
     Active Substance: FORMOTEROL
     Indication: CHRONIC OBSTRUCTIVE PULMONARY DISEASE
     Dosage: UNK
     Route: 055
  5. RIVAROXABAN [Suspect]
     Active Substance: RIVAROXABAN
     Indication: PRODUCT USED FOR UNKNOWN INDICATION
     Dosage: 20 MILLIGRAM, ONCE A DAY
     Route: 065
     Dates: start: 201510
  6. DABIGATRAN [Suspect]
     Active Substance: DABIGATRAN
     Indication: PRODUCT USED FOR UNKNOWN INDICATION
     Dosage: 150 MILLIGRAM, TWO TIMES A DAY
     Route: 065
     Dates: start: 201601
  7. IPRATROPIUM BROMIDE. [Suspect]
     Active Substance: IPRATROPIUM BROMIDE
     Indication: CHRONIC OBSTRUCTIVE PULMONARY DISEASE
     Dosage: UNK
     Route: 065
  8. BISOPROLOL [Suspect]
     Active Substance: BISOPROLOL
     Indication: HYPERTENSION
     Dosage: UNK
     Route: 065
  9. BERODUAL [Suspect]
     Active Substance: FENOTEROL HYDROBROMIDE\IPRATROPIUM BROMIDE
     Indication: CHRONIC OBSTRUCTIVE PULMONARY DISEASE
     Dosage: UNK
     Route: 055
  10. DABIGATRAN [Suspect]
     Active Substance: DABIGATRAN
     Dosage: 220 MILLIGRAM, ONCE A DAY
     Route: 065
     Dates: start: 201601
  11. LACIDIPINE [Suspect]
     Active Substance: LACIDIPINE
     Indication: HYPERTENSION
     Dosage: UNK
     Route: 065
  12. LEVOTHYROXINE. [Suspect]
     Active Substance: LEVOTHYROXINE
     Indication: HYPOTHYROIDISM
     Dosage: UNK
     Route: 065
  13. PRAXBIND [Suspect]
     Active Substance: IDARUCIZUMAB
     Indication: PRODUCT USED FOR UNKNOWN INDICATION
     Dosage: 2.5 GRAM, TWO TIMES A DAY
     Route: 065

REACTIONS (4)
  - Anaemia [Fatal]
  - Epistaxis [Fatal]
  - Acute coronary syndrome [Fatal]
  - Shock [Fatal]

NARRATIVE: CASE EVENT DATE: 20160812
